FAERS Safety Report 5125647-9 (Version None)
Quarter: 2006Q4

REPORT INFORMATION
  Report Type: 
  Country: None (occurrence: None)
  Receive Date: 20061012
  Receipt Date: 20060921
  Transmission Date: 20070319
  Serious: Yes (Other)
  Sender: FDA-Public Use
  Company Number: 2006UW18502

PATIENT
  Age: 77 Year
  Sex: Female
  Weight: 103.6 kg

DRUGS (5)
  1. ARIMIDEX [Suspect]
     Indication: BREAST CANCER FEMALE
     Route: 048
  2. ALPHAGAN [Concomitant]
  3. LUMIGAN [Concomitant]
  4. AVAPRO [Concomitant]
  5. HYDRALAZINE HCL [Concomitant]

REACTIONS (1)
  - GLAUCOMA [None]
